FAERS Safety Report 4412468-5 (Version None)
Quarter: 2004Q2

REPORT INFORMATION
  Report Type: 
  Country: None (occurrence: None)
  Receive Date: 20040630
  Receipt Date: 20040302
  Transmission Date: 20050107
  Serious: No
  Sender: FDA-Public Use
  Company Number: 04P-163-0256832-00

PATIENT
  Age: 52 Year
  Sex: Female
  Weight: 127.0072 kg

DRUGS (4)
  1. HUMIRA [Suspect]
     Indication: RHEUMATOID ARTHRITIS
     Dosage: 40 MG, 1 IN2  WK, SUBCUTANEOUS
     Route: 058
     Dates: start: 20030901, end: 20040301
  2. VICODIN [Concomitant]
  3. LEVOTHYROXINE SODIUM [Concomitant]
  4. ATENOLOL [Concomitant]

REACTIONS (6)
  - COUGH [None]
  - DRUG EFFECT DECREASED [None]
  - PRODUCTIVE COUGH [None]
  - RESPIRATORY TRACT CONGESTION [None]
  - SINUSITIS [None]
  - VOCAL CORD DISORDER [None]
